FAERS Safety Report 20769486 (Version 1)
Quarter: 2022Q2

REPORT INFORMATION
  Report Type: Spontaneous
  Country: CA (occurrence: CA)
  Receive Date: 20220429
  Receipt Date: 20220429
  Transmission Date: 20220720
  Serious: Yes (Other)
  Sender: FDA-Public Use
  Company Number: CA-NAPPMUNDI-GBR-2022-0097331

PATIENT
  Age: 45 Year
  Sex: Female

DRUGS (2)
  1. MORPHINE SULFATE [Suspect]
     Active Substance: MORPHINE SULFATE
     Indication: Product used for unknown indication
     Dosage: UNK
     Route: 065
  2. OMALIZUMAB [Suspect]
     Active Substance: OMALIZUMAB
     Indication: Chronic spontaneous urticaria
     Dosage: 300 MILLIGRAM
     Route: 058

REACTIONS (8)
  - Cystitis [Not Recovered/Not Resolved]
  - Drug hypersensitivity [Not Recovered/Not Resolved]
  - Dry eye [Not Recovered/Not Resolved]
  - Eye discharge [Not Recovered/Not Resolved]
  - Eye irritation [Not Recovered/Not Resolved]
  - Impaired healing [Not Recovered/Not Resolved]
  - Pain [Not Recovered/Not Resolved]
  - Wrist fracture [Not Recovered/Not Resolved]
